FAERS Safety Report 25907702 (Version 2)
Quarter: 2025Q4

REPORT INFORMATION
  Report Type: Spontaneous
  Country: EU (occurrence: EU)
  Receive Date: 20251010
  Receipt Date: 20251107
  Transmission Date: 20260118
  Serious: Yes (Other)
  Sender: ROCHE
  Company Number: None

PATIENT
  Age: 69 Year
  Sex: Male

DRUGS (10)
  1. RITUXIMAB [Suspect]
     Active Substance: RITUXIMAB
     Indication: Chronic lymphocytic leukaemia
     Route: 065
     Dates: start: 202011, end: 202212
  2. RITUXIMAB [Suspect]
     Active Substance: RITUXIMAB
     Route: 065
     Dates: start: 201110
  3. OBINUTUZUMAB [Suspect]
     Active Substance: OBINUTUZUMAB
     Indication: Chronic lymphocytic leukaemia
     Route: 065
     Dates: start: 201703, end: 201801
  4. IBRUTINIB [Suspect]
     Active Substance: IBRUTINIB
     Indication: Chronic lymphocytic leukaemia
     Route: 048
     Dates: start: 201405, end: 201702
  5. IDELALISIB [Suspect]
     Active Substance: IDELALISIB
     Indication: Chronic lymphocytic leukaemia
     Route: 065
     Dates: start: 201703, end: 201801
  6. VENETOCLAX [Suspect]
     Active Substance: VENETOCLAX
     Indication: Chronic lymphocytic leukaemia
     Route: 048
     Dates: start: 202011, end: 202212
  7. BENDAMUSTINE [Suspect]
     Active Substance: BENDAMUSTINE
     Indication: Chronic lymphocytic leukaemia
     Route: 065
     Dates: start: 201703, end: 201801
  8. BENDAMUSTINE [Suspect]
     Active Substance: BENDAMUSTINE
     Route: 065
     Dates: start: 201110
  9. RIVAROXABAN [Suspect]
     Active Substance: RIVAROXABAN
     Indication: Anticoagulant therapy
     Route: 065
     Dates: start: 201405
  10. EVUSHELD [Concomitant]
     Active Substance: CILGAVIMAB\TIXAGEVIMAB
     Indication: COVID-19
     Route: 065

REACTIONS (14)
  - Richter^s syndrome [Unknown]
  - Pneumonia [Unknown]
  - Weight decreased [Unknown]
  - White blood cell count increased [Unknown]
  - Anaemia [Unknown]
  - Herpes zoster [Unknown]
  - Haematoma [Unknown]
  - Bronchitis [Unknown]
  - Diarrhoea [Recovering/Resolving]
  - Bronchopulmonary aspergillosis [Unknown]
  - Atypical pneumonia [Unknown]
  - Dyspnoea [Unknown]
  - Bronchitis chronic [Unknown]
  - Pneumonia [Unknown]
